FAERS Safety Report 26216325 (Version 1)
Quarter: 2025Q4

REPORT INFORMATION
  Report Type: Spontaneous
  Country: GB (occurrence: GB)
  Receive Date: 20251231
  Receipt Date: 20251231
  Transmission Date: 20260118
  Serious: Yes (Disabling)
  Sender: RECKITT BENCKISER
  Company Number: GB-RBHC-20-25-GBR-RB-0028476

PATIENT
  Age: 48 Year
  Sex: Female

DRUGS (4)
  1. HEXYLRESORCINOL [Suspect]
     Active Substance: HEXYLRESORCINOL
     Indication: Product used for unknown indication
     Dosage: UNKNOWN
     Route: 065
  2. AMITRIPTYLINE [Concomitant]
     Active Substance: AMITRIPTYLINE
     Indication: Product used for unknown indication
     Dosage: UNKNOWN
     Route: 065
  3. IBUPROFEN [Concomitant]
     Active Substance: IBUPROFEN
     Indication: Product used for unknown indication
     Dosage: UNKNOWN
     Route: 065
  4. ACETAMINOPHEN [Concomitant]
     Active Substance: ACETAMINOPHEN
     Indication: Product used for unknown indication
     Dosage: UNKNOWN
     Route: 065

REACTIONS (1)
  - Somnolence [Recovered/Resolved]
